FAERS Safety Report 4656322-2 (Version None)
Quarter: 2005Q2

REPORT INFORMATION
  Report Type: 
  Country: None (occurrence: None)
  Receive Date: 20050509
  Receipt Date: 20050407
  Transmission Date: 20051028
  Serious: No
  Sender: FDA-Public Use
  Company Number: US-GLAXOSMITHKLINE-A0553151A

PATIENT
  Sex: Male

DRUGS (5)
  1. AVANDAMET [Suspect]
     Dosage: 2MG TWICE PER DAY
     Route: 048
  2. LISINOPRIL [Concomitant]
  3. PROTONIX [Concomitant]
  4. VITAMIN B COMPLEX CAP [Concomitant]
  5. ASPIRIN [Concomitant]

REACTIONS (2)
  - ADVERSE EVENT [None]
  - OEDEMA PERIPHERAL [None]
